FAERS Safety Report 7907434-9 (Version None)
Quarter: 2011Q4

REPORT INFORMATION
  Report Type: 
  Country: None (occurrence: None)
  Receive Date: 20111109
  Receipt Date: 20111024
  Transmission Date: 20120403
  Serious: Yes (Death)
  Sender: FDA-Public Use
  Company Number: JP-2011-11602

PATIENT
  Age: 75 Year
  Sex: Male
  Weight: 74 kg

DRUGS (7)
  1. BLOPRESS (CANDESARTAN CILEXETIL) [Concomitant]
  2. PLETAL [Suspect]
     Indication: ARTERIOSCLEROSIS OBLITERANS
     Dosage: 50 MG MILLIGRAM(S), BID, ORAL, 100 MG MILLIGRAM(S), BID, ORAL
     Route: 048
     Dates: start: 20110511, end: 20110715
  3. PLETAL [Suspect]
     Indication: CEREBRAL INFARCTION
     Dosage: 50 MG MILLIGRAM(S), BID, ORAL, 100 MG MILLIGRAM(S), BID, ORAL
     Route: 048
     Dates: start: 20110511, end: 20110715
  4. PLETAL [Suspect]
     Indication: ARTERIOSCLEROSIS OBLITERANS
     Dosage: 50 MG MILLIGRAM(S), BID, ORAL, 100 MG MILLIGRAM(S), BID, ORAL
     Route: 048
     Dates: start: 20110406, end: 20110510
  5. PLETAL [Suspect]
     Indication: CEREBRAL INFARCTION
     Dosage: 50 MG MILLIGRAM(S), BID, ORAL, 100 MG MILLIGRAM(S), BID, ORAL
     Route: 048
     Dates: start: 20110406, end: 20110510
  6. SERMION (NICERGOLINE) [Concomitant]
  7. BEZATOL SR (BEZAFIBRATE) [Concomitant]

REACTIONS (7)
  - FOAMING AT MOUTH [None]
  - SPUTUM ABNORMAL [None]
  - ACUTE MYOCARDIAL INFARCTION [None]
  - FALL [None]
  - LOSS OF CONSCIOUSNESS [None]
  - CARDIO-RESPIRATORY ARREST [None]
  - PULSELESS ELECTRICAL ACTIVITY [None]
